FAERS Safety Report 15225998 (Version 1)
Quarter: 2018Q3

REPORT INFORMATION
  Report Type: Spontaneous
  Country: US (occurrence: US)
  Receive Date: 20180706
  Receipt Date: 20180706
  Transmission Date: 20181010
  Serious: Yes (Other)
  Sender: FDA-Public Use
  Company Number: None

PATIENT
  Age: 78 Year
  Sex: Female
  Weight: 55.35 kg

DRUGS (7)
  1. SINEMET [Concomitant]
     Active Substance: CARBIDOPA\LEVODOPA
  2. CALCIUM [Concomitant]
     Active Substance: CALCIUM
  3. LOSARTAN. [Concomitant]
     Active Substance: LOSARTAN
  4. LAMOTRIGINE. [Concomitant]
     Active Substance: LAMOTRIGINE
  5. LAMOTRIGINE. [Suspect]
     Active Substance: LAMOTRIGINE
     Indication: EPILEPSY
     Dosage: ?          QUANTITY:2 TABLET(S);?
     Route: 048
     Dates: start: 20160202
  6. TOPROL XL [Concomitant]
     Active Substance: METOPROLOL SUCCINATE
  7. 81MG ASPIRIN [Concomitant]

REACTIONS (5)
  - Pruritus [None]
  - Blister [None]
  - Adverse drug reaction [None]
  - Erythema [None]
  - Therapy change [None]

NARRATIVE: CASE EVENT DATE: 20180701
